FAERS Safety Report 20475206 (Version 1)
Quarter: 2022Q1

REPORT INFORMATION
  Report Type: Spontaneous
  Country: US (occurrence: US)
  Receive Date: 20220215
  Receipt Date: 20220215
  Transmission Date: 20220423
  Serious: Yes (Hospitalization)
  Sender: FDA-Public Use
  Company Number: US-MYLANLABS-2022M1012491

PATIENT
  Age: 61 Year
  Sex: Female

DRUGS (1)
  1. METHOTREXATE [Suspect]
     Active Substance: METHOTREXATE
     Indication: Psoriatic arthropathy
     Dosage: UNK,TREATED SINCE 3 YEARS
     Route: 065

REACTIONS (3)
  - Infective tenosynovitis [Recovering/Resolving]
  - Campylobacter infection [Recovering/Resolving]
  - Musculoskeletal disorder [Recovered/Resolved]
